FAERS Safety Report 8139242-0 (Version None)
Quarter: 2012Q1

REPORT INFORMATION
  Report Type: 
  Country: None (occurrence: None)
  Receive Date: 20120215
  Receipt Date: 20120203
  Transmission Date: 20120608
  Serious: Yes (Death, Hospitalization, Disabling, Other)
  Sender: FDA-Public Use
  Company Number: US-MYLANLABS-2012S1003142

PATIENT
  Sex: Female
  Weight: 6.7 kg

DRUGS (20)
  1. POTASSIUM CHLORIDE [Concomitant]
  2. COREG [Concomitant]
  3. LEVAQUIN [Concomitant]
  4. FERROUS SULFATE TAB [Concomitant]
  5. ATROVENT [Concomitant]
  6. ASPIRIN [Concomitant]
  7. FUROSEMIDE [Concomitant]
  8. ALBUTEROL [Concomitant]
  9. PREDNISONE TAB [Concomitant]
  10. VERSED [Concomitant]
  11. AFRIN /00070001/ [Concomitant]
  12. MUCINEX [Concomitant]
  13. NEXIUM [Concomitant]
  14. FENTANYL-100 [Concomitant]
  15. LASIX [Concomitant]
  16. NIFEDIPINE [Concomitant]
  17. DIGOXIN [Suspect]
     Route: 048
     Dates: start: 20060118, end: 20080214
  18. FLAGYL [Concomitant]
  19. SYNTHROID [Concomitant]
  20. IPRATROPIUM BROMIDE [Concomitant]

REACTIONS (68)
  - GENERALISED OEDEMA [None]
  - APHASIA [None]
  - GASTROINTESTINAL HAEMORRHAGE [None]
  - BLOOD ALKALINE PHOSPHATASE [None]
  - BLOOD POTASSIUM DECREASED [None]
  - HYPERTENSION [None]
  - PACKED RED BLOOD CELL TRANSFUSION [None]
  - CHILLS [None]
  - HAEMATEMESIS [None]
  - ATRIAL FIBRILLATION [None]
  - CARDIOMYOPATHY [None]
  - PULMONARY OEDEMA [None]
  - ATRIAL FLUTTER [None]
  - CHRONIC OBSTRUCTIVE PULMONARY DISEASE [None]
  - CONDITION AGGRAVATED [None]
  - DEPRESSION [None]
  - HYPOKALAEMIA [None]
  - OCCULT BLOOD POSITIVE [None]
  - PNEUMOTHORAX [None]
  - BLADDER CATHETERISATION [None]
  - LIVER FUNCTION TEST ABNORMAL [None]
  - MUSCULAR WEAKNESS [None]
  - OEDEMA PERIPHERAL [None]
  - ATELECTASIS [None]
  - PLEURAL EFFUSION [None]
  - RENAL FAILURE ACUTE [None]
  - ASTHENIA [None]
  - CARDIAC FAILURE CONGESTIVE [None]
  - DISORIENTATION [None]
  - HEART RATE INCREASED [None]
  - HEPATOMEGALY [None]
  - ORTHOPNOEA [None]
  - OEDEMA [None]
  - URINARY TRACT INFECTION [None]
  - DIARRHOEA [None]
  - BREATH SOUNDS ABNORMAL [None]
  - ANAEMIA [None]
  - VARICES OESOPHAGEAL [None]
  - BLOOD TEST ABNORMAL [None]
  - DYSPNOEA EXERTIONAL [None]
  - LIVER DISORDER [None]
  - WHEEZING [None]
  - HAEMOGLOBIN DECREASED [None]
  - PORTAL HYPERTENSIVE GASTROPATHY [None]
  - BLOOD PRESSURE DECREASED [None]
  - CLOSTRIDIUM DIFFICILE COLITIS [None]
  - CONFUSIONAL STATE [None]
  - HAEMORRHOIDS [None]
  - SPLENOMEGALY [None]
  - CARDIOACTIVE DRUG LEVEL DECREASED [None]
  - COUGH [None]
  - DYSPNOEA [None]
  - NEPHROLITHIASIS [None]
  - PNEUMONIA [None]
  - VENTRICULAR EXTRASYSTOLES [None]
  - JUGULAR VEIN DISTENSION [None]
  - PRODUCTIVE COUGH [None]
  - DEATH [None]
  - WALKING AID USER [None]
  - HYDRONEPHROSIS [None]
  - MELAENA [None]
  - ASPIRATION PLEURAL CAVITY [None]
  - BRONCHITIS [None]
  - CARDIOMEGALY [None]
  - DIASTOLIC DYSFUNCTION [None]
  - HOSPICE CARE [None]
  - ABDOMINAL PAIN [None]
  - FATIGUE [None]
